FAERS Safety Report 17783153 (Version 1)
Quarter: 2020Q2

REPORT INFORMATION
  Report Type: Spontaneous
  Country: CN (occurrence: CN)
  Receive Date: 20200514
  Receipt Date: 20200514
  Transmission Date: 20200714
  Serious: Yes (Other)
  Sender: FDA-Public Use
  Company Number: CN-ROCHE-2598759

PATIENT
  Age: 55 Year
  Sex: Male
  Weight: 74 kg

DRUGS (10)
  1. OXALIPLATIN. [Suspect]
     Active Substance: OXALIPLATIN
     Indication: RECTAL CANCER
     Dosage: FOLFOX6 REGIMEN 4 TIMES
     Route: 065
     Dates: start: 20191109
  2. AVASTIN [Suspect]
     Active Substance: BEVACIZUMAB
     Indication: METASTASES TO LUNG
  3. FLUOROURACIL. [Suspect]
     Active Substance: FLUOROURACIL
     Indication: METASTASES TO LUNG
  4. XELODA [Suspect]
     Active Substance: CAPECITABINE
     Indication: METASTASES TO LUNG
  5. CALCIUM FOLINATE [Suspect]
     Active Substance: LEUCOVORIN CALCIUM
     Indication: METASTASES TO LUNG
  6. CALCIUM FOLINATE [Suspect]
     Active Substance: LEUCOVORIN CALCIUM
     Indication: RECTAL CANCER
     Dosage: FOLFOX6 REGIMEN 4 TIMES
     Route: 065
     Dates: start: 20191109
  7. OXALIPLATIN. [Suspect]
     Active Substance: OXALIPLATIN
     Indication: METASTASES TO LUNG
  8. AVASTIN [Suspect]
     Active Substance: BEVACIZUMAB
     Indication: RECTAL CANCER
     Route: 041
     Dates: start: 20200110
  9. FLUOROURACIL. [Suspect]
     Active Substance: FLUOROURACIL
     Indication: RECTAL CANCER
     Dosage: FOLFOX6 REGIMEN 4 TIMES
     Route: 065
     Dates: start: 20191109
  10. XELODA [Suspect]
     Active Substance: CAPECITABINE
     Indication: RECTAL CANCER
     Dosage: PER DAY
     Route: 048
     Dates: start: 20200110

REACTIONS (4)
  - Anaemia [Unknown]
  - Pollakiuria [Unknown]
  - Protein urine [Unknown]
  - Diarrhoea [Unknown]
